FAERS Safety Report 13793812 (Version 1)
Quarter: 2017Q3

REPORT INFORMATION
  Report Type: Spontaneous
  Country: JP (occurrence: JP)
  Receive Date: 20170726
  Receipt Date: 20170726
  Transmission Date: 20171127
  Serious: Yes (Hospitalization)
  Sender: FDA-Public Use
  Company Number: JP-JNJFOC-20170717449

PATIENT
  Age: 29 Year
  Sex: Male
  Weight: 48 kg

DRUGS (9)
  1. RISPERIDONE. [Concomitant]
     Active Substance: RISPERIDONE
     Route: 048
  2. QUETIAPINE FUMARATE. [Concomitant]
     Active Substance: QUETIAPINE FUMARATE
     Route: 048
  3. MESALAZINE [Concomitant]
     Active Substance: MESALAMINE
     Route: 048
  4. TACROLIMUS. [Suspect]
     Active Substance: TACROLIMUS
     Indication: PRODUCT USED FOR UNKNOWN INDICATION
     Route: 048
  5. ETIZOLAM [Concomitant]
     Active Substance: ETIZOLAM
     Route: 048
  6. TRIAZOLAM. [Concomitant]
     Active Substance: TRIAZOLAM
     Route: 048
  7. LANSOPRAZOLE. [Concomitant]
     Active Substance: LANSOPRAZOLE
     Route: 048
  8. STELARA [Suspect]
     Active Substance: USTEKINUMAB
     Indication: CROHN^S DISEASE
     Route: 042
     Dates: start: 20170608, end: 20170608
  9. ELENTAL [Concomitant]
     Active Substance: AMINO ACIDS\CARBOHYDRATES\MINERALS\SOYBEAN OIL\VITAMINS
     Route: 048

REACTIONS (1)
  - Posterior reversible encephalopathy syndrome [Unknown]

NARRATIVE: CASE EVENT DATE: 20170705
